FAERS Safety Report 14992722 (Version 1)
Quarter: 2018Q2

REPORT INFORMATION
  Report Type: Spontaneous
  Country: DE (occurrence: DE)
  Receive Date: 20180609
  Receipt Date: 20180609
  Transmission Date: 20180711
  Serious: Yes (Hospitalization)
  Sender: FDA-Public Use
  Company Number: DE-TEVA-2018-DE-902193

PATIENT
  Age: 87 Year
  Sex: Female
  Weight: 55 kg

DRUGS (8)
  1. CONCOR [Suspect]
     Active Substance: BISOPROLOL FUMARATE
     Dosage: 2.5 MILLIGRAM DAILY; 1.25 MG,
     Route: 048
  2. KALINOR [Concomitant]
     Dosage: 3 DOSAGE FORMS DAILY;
     Route: 048
  3. MG VERLA [Concomitant]
     Dosage: 3 DOSAGE FORMS DAILY;
     Route: 048
  4. ACETYLSALICYLSAEURE [Concomitant]
     Active Substance: ASPIRIN
     Dosage: 100 MILLIGRAM DAILY;
     Route: 048
  5. TOREM [Suspect]
     Active Substance: TORSEMIDE
     Dosage: 10 MILLIGRAM DAILY; 5 MG, 1-1-0-0
     Route: 048
  6. RAMIPRIL. [Suspect]
     Active Substance: RAMIPRIL
     Dosage: 5 MG, 1-0-1-0
     Route: 048
  7. PANTOZOL [Concomitant]
     Active Substance: PANTOPRAZOLE SODIUM
     Route: 048
  8. PLAVIX [Concomitant]
     Active Substance: CLOPIDOGREL BISULFATE
     Dosage: 75 MILLIGRAM DAILY;
     Route: 048

REACTIONS (2)
  - Syncope [Recovering/Resolving]
  - Aphasia [Recovering/Resolving]
